FAERS Safety Report 23250461 (Version 1)
Quarter: 2023Q4

REPORT INFORMATION
  Report Type: Spontaneous
  Country: US (occurrence: US)
  Receive Date: 20231201
  Receipt Date: 20231201
  Transmission Date: 20240109
  Serious: Yes (Hospitalization, Other)
  Sender: FDA-Public Use
  Company Number: US-Fresenius Medical Care Renal Therapies Group-FMC-2311-001278

PATIENT
  Age: 48 Year
  Sex: Female
  Weight: 75 kg

DRUGS (3)
  1. DELFLEX WITH DEXTROSE 1.5% LOW MAGNESIUM LOW CALCIUM [Suspect]
     Active Substance: CALCIUM CHLORIDE\DEXTROSE\MAGNESIUM CHLORIDE\SODIUM CHLORIDE\SODIUM LACTATE
     Dosage: WITH EXCHANGES 4, FILL VOL 2000 ML, CYCLER THERAPY VOLUME 8000 ML, CYCLER THERAPY TIME 7 HRS 54 MIN,
     Route: 033
  2. DELFLEX WITH DEXTROSE 2.5% LOW MAGNESIUM LOW CALCIUM [Suspect]
     Active Substance: CALCIUM CHLORIDE\DEXTROSE\MAGNESIUM CHLORIDE\SODIUM CHLORIDE\SODIUM LACTATE
     Dosage: WITH EXCHANGES 4, FILL VOL 2000 ML, CYCLER THERAPY VOLUME 8000 ML, CYCLER THERAPY TIME 7 HRS 54 MIN,
     Route: 033
  3. DELFLEX WITH DEXTROSE 4.25% LOW MAGNESIUM LOW CALCIUM [Suspect]
     Active Substance: CALCIUM CHLORIDE\DEXTROSE\MAGNESIUM CHLORIDE\SODIUM CHLORIDE\SODIUM LACTATE
     Dosage: WITH EXCHANGES 4, FILL VOL 2000 ML, CYCLER THERAPY VOLUME 8000 ML, CYCLER THERAPY TIME 7 HRS 54 MIN,
     Route: 033

REACTIONS (2)
  - Complication associated with device [Unknown]
  - Peritonitis bacterial [Unknown]
